FAERS Safety Report 9171748 (Version 1)
Quarter: 2013Q1

REPORT INFORMATION
  Report Type: Spontaneous
  Country: JP (occurrence: None)
  Receive Date: 20130318
  Receipt Date: 20130318
  Transmission Date: 20140127
  Serious: Yes (Death)
  Sender: FDA-Public Use
  Company Number: FK201300775

PATIENT
  Sex: Female
  Weight: 45 kg

DRUGS (3)
  1. HEPARIN [Suspect]
     Indication: HAEMODIALYSIS
     Dosage: UNKNOWN, THREE TIMES WEEKLY DURING HEMODIALYSIS, UNKNOWN
  2. ACETYLSALICYLIC ACID [Suspect]
     Indication: PRODUCT USED FOR UNKNOWN INDICATION
  3. PREDNISOLONE(PREDNISOLONE) [Concomitant]

REACTIONS (2)
  - Haemorrhage [None]
  - Haematoma [None]
